FAERS Safety Report 5343367-2 (Version None)
Quarter: 2007Q2

REPORT INFORMATION
  Report Type: 
  Country: None (occurrence: None)
  Receive Date: 20070501
  Receipt Date: 20070108
  Transmission Date: 20071010
  Serious: No
  Sender: FDA-Public Use
  Company Number: 200613020US

PATIENT
  Age: 53 Year
  Sex: Female
  Weight: 86.36 kg

DRUGS (1)
  1. KETEK [Suspect]
     Indication: NASOPHARYNGITIS
     Dosage: 800 MG
     Dates: start: 20060307, end: 20070311

REACTIONS (9)
  - ASTHENIA [None]
  - CHILLS [None]
  - DIARRHOEA [None]
  - FATIGUE [None]
  - HEADACHE [None]
  - HYPERHIDROSIS [None]
  - IMPAIRED DRIVING ABILITY [None]
  - INSOMNIA [None]
  - MENTAL IMPAIRMENT [None]
